FAERS Safety Report 24398989 (Version 2)
Quarter: 2025Q3

REPORT INFORMATION
  Report Type: Report from Study
  Country: CA (occurrence: CA)
  Receive Date: 20241004
  Receipt Date: 20250803
  Transmission Date: 20251020
  Serious: Yes (Other)
  Sender: ALEXION PHARMACEUTICALS
  Company Number: CA-AstraZeneca-CH-00707579A

PATIENT
  Sex: Female
  Weight: 57.5 kg

DRUGS (4)
  1. ULTOMIRIS [Suspect]
     Active Substance: RAVULIZUMAB-CWVZ
     Indication: Paroxysmal nocturnal haemoglobinuria
     Dates: start: 20220128, end: 20220128
  2. ULTOMIRIS [Suspect]
     Active Substance: RAVULIZUMAB-CWVZ
  3. ULTOMIRIS [Suspect]
     Active Substance: RAVULIZUMAB-CWVZ
     Dosage: 3000 MILLIGRAM, Q8W
     Dates: start: 20220406
  4. PENICILLIN [Concomitant]
     Active Substance: PENICILLIN
     Indication: Prophylaxis
     Dosage: 300 MILLIGRAM, BID
     Route: 065

REACTIONS (13)
  - Immunosuppression [Unknown]
  - Haemolysis [Unknown]
  - Haptoglobin decreased [Unknown]
  - Anaemia [Unknown]
  - Ischaemia [Unknown]
  - Abdominal pain [Unknown]
  - Muscle spasms [Unknown]
  - Reticulocyte count increased [Unknown]
  - Monocyte count decreased [Unknown]
  - Blood albumin increased [Unknown]
  - Blood creatinine increased [Unknown]
  - Red blood cell count decreased [Unknown]
  - Neutrophil count increased [Unknown]
